FAERS Safety Report 25459993 (Version 2)
Quarter: 2025Q3

REPORT INFORMATION
  Report Type: Report from Study
  Country: US (occurrence: US)
  Receive Date: 20250620
  Receipt Date: 20250715
  Transmission Date: 20251020
  Serious: Yes (Death)
  Sender: ABBVIE
  Company Number: US-ABBVIE-6336891

PATIENT
  Sex: Female

DRUGS (1)
  1. SYNTHROID [Suspect]
     Active Substance: LEVOTHYROXINE SODIUM
     Indication: Hypothyroidism
     Dosage: 50MCG/1 TAB 6 DAYS, 2 TABS ON SAT + 2 TABS ON SUN
     Route: 048
     Dates: start: 20240124

REACTIONS (1)
  - Pancreatic carcinoma [Fatal]
